FAERS Safety Report 25217548 (Version 8)
Quarter: 2025Q4

REPORT INFORMATION
  Report Type: Spontaneous
  Country: JP (occurrence: JP)
  Receive Date: 20250420
  Receipt Date: 20251022
  Transmission Date: 20260118
  Serious: Yes (Death, Life-Threatening, Hospitalization, Other)
  Sender: AMGEN
  Company Number: JP-KISSEI-TV20250373_P_1

PATIENT
  Age: 65 Year
  Sex: Male
  Weight: 62.7 kg

DRUGS (23)
  1. TAVNEOS [Suspect]
     Active Substance: AVACOPAN
     Indication: Microscopic polyangiitis
     Dosage: 60 MG, QD
     Route: 048
     Dates: start: 20250213, end: 20250408
  2. TAVNEOS [Suspect]
     Active Substance: AVACOPAN
     Dosage: 40 MG, QD
     Route: 048
  3. PREDONINE [Concomitant]
     Active Substance: PREDNISOLONE
     Indication: Granulomatosis with polyangiitis
     Dosage: 40 MG, QD
     Route: 065
  4. PREDONINE [Concomitant]
     Active Substance: PREDNISOLONE
     Indication: Vanishing bile duct syndrome
     Dosage: 30 MG, QD
     Route: 065
  5. PREDONINE [Concomitant]
     Active Substance: PREDNISOLONE
     Dosage: 20 MG, QD
     Route: 065
  6. PREDONINE [Concomitant]
     Active Substance: PREDNISOLONE
     Dosage: 17.5 MG, QD
     Route: 065
  7. PREDONINE [Concomitant]
     Active Substance: PREDNISOLONE
     Dosage: 15 MG, QD
     Route: 065
  8. PREDONINE [Concomitant]
     Active Substance: PREDNISOLONE
     Dosage: 12.5 MG, QD
     Route: 065
  9. PREDONINE [Concomitant]
     Active Substance: PREDNISOLONE
     Dosage: 10 MG, QD
     Route: 065
  10. PREDONINE [Concomitant]
     Active Substance: PREDNISOLONE
     Dosage: 9 MG, QD
     Route: 065
  11. PREDONINE [Concomitant]
     Active Substance: PREDNISOLONE
     Dosage: 8 MG, QD
     Route: 065
  12. PREDONINE [Concomitant]
     Active Substance: PREDNISOLONE
     Dosage: 7 MG, QD
     Route: 065
  13. PREDONINE [Concomitant]
     Active Substance: PREDNISOLONE
     Dosage: 15 MG, QD
     Route: 065
     Dates: start: 20250408
  14. RITUXIMAB [Concomitant]
     Active Substance: RITUXIMAB
     Indication: Granulomatosis with polyangiitis
     Dosage: 5 WEEK
     Route: 040
  15. VONOPRAZAN FUMARATE [Concomitant]
     Active Substance: VONOPRAZAN FUMARATE
     Dosage: 10 MG, QD
     Route: 048
     Dates: start: 2023
  16. LINAGLIPTIN [Concomitant]
     Active Substance: LINAGLIPTIN
     Dosage: 5 MG, QD
     Route: 048
  17. FEBUXOSTAT [Concomitant]
     Active Substance: FEBUXOSTAT
     Dosage: 20 MG, QD
     Route: 048
  18. ATOVAQUONE [Concomitant]
     Active Substance: ATOVAQUONE
     Dosage: UNK
     Route: 048
  19. SODIUM BICARBONATE [Concomitant]
     Active Substance: SODIUM BICARBONATE
     Dosage: 1 G, QD
     Route: 065
  20. ALFACALCIDOL [Concomitant]
     Active Substance: ALFACALCIDOL
     Dosage: 0.25 MUG, QD
     Route: 048
  21. ATORVASTATIN [Concomitant]
     Active Substance: ATORVASTATIN
     Dosage: 10 MG, QD
     Route: 048
  22. AZILSARTAN KAMEDOXOMIL [Concomitant]
     Active Substance: AZILSARTAN KAMEDOXOMIL
     Dosage: 40 MG, QD
  23. AMLODIPINE [Concomitant]
     Active Substance: AMLODIPINE BESYLATE
     Dosage: 5 MG, QD

REACTIONS (8)
  - Multiple organ dysfunction syndrome [Fatal]
  - Vanishing bile duct syndrome [Not Recovered/Not Resolved]
  - Suspected drug-induced liver injury [Unknown]
  - Cholestatic liver injury [Unknown]
  - Pruritus [Unknown]
  - Jaundice [Unknown]
  - Decreased appetite [Unknown]
  - Malnutrition [Unknown]

NARRATIVE: CASE EVENT DATE: 20250101
